FAERS Safety Report 14148284 (Version 2)
Quarter: 2018Q1

REPORT INFORMATION
  Report Type: Spontaneous
  Country: JP (occurrence: JP)
  Receive Date: 20171101
  Receipt Date: 20180316
  Transmission Date: 20180508
  Serious: Yes (Hospitalization, Other)
  Sender: FDA-Public Use
  Company Number: JP-TAKEDA-2017TJP022813AA

PATIENT
  Age: 47 Year
  Sex: Male

DRUGS (3)
  1. ZOLPIDEM TARTRATE. [Concomitant]
     Active Substance: ZOLPIDEM TARTRATE
     Dosage: 28 DF, UNK
     Route: 048
     Dates: start: 20160515
  2. ROZEREM [Suspect]
     Active Substance: RAMELTEON
     Dosage: 1840 MG, UNK
     Route: 048
     Dates: start: 20160515
  3. ROZEREM [Suspect]
     Active Substance: RAMELTEON
     Indication: INSOMNIA
     Dosage: UNK
     Route: 048

REACTIONS (4)
  - Somnolence [Recovered/Resolved]
  - Intentional overdose [Unknown]
  - Poor quality sleep [Recovered/Resolved]
  - Delayed sleep phase [Recovering/Resolving]

NARRATIVE: CASE EVENT DATE: 201605
